FAERS Safety Report 5106035-8 (Version None)
Quarter: 2006Q3

REPORT INFORMATION
  Report Type: 
  Country: None (occurrence: None)
  Receive Date: 20060915
  Receipt Date: 20060818
  Transmission Date: 20061208
  Serious: Yes (Other)
  Sender: FDA-Public Use
  Company Number: CA-ABBOTT-06P-028-0341112-00

PATIENT
  Age: 49 Year
  Sex: Male
  Weight: 104.5 kg

DRUGS (4)
  1. MERIDIA [Suspect]
     Indication: WEIGHT CONTROL
     Dates: start: 20060810, end: 20060816
  2. MERIDIA [Suspect]
     Route: 048
     Dates: start: 20051001
  3. GEZOR [Concomitant]
     Indication: HYPERTENSION
     Route: 048
     Dates: start: 20020101
  4. ATORVASTATIN CALCIUM [Concomitant]
     Indication: HYPERCHOLESTEROLAEMIA
     Route: 048
     Dates: start: 20020101

REACTIONS (2)
  - AGITATION [None]
  - THROAT TIGHTNESS [None]
